FAERS Safety Report 10755020 (Version 1)
Quarter: 2015Q1

REPORT INFORMATION
  Report Type: Spontaneous
  Country: US (occurrence: None)
  Receive Date: 20150130
  Receipt Date: 20150130
  Transmission Date: 20150721
  Serious: No
  Sender: FDA-Public Use
  Company Number: None

PATIENT
  Age: 3 Year
  Sex: Female
  Weight: 14.06 kg

DRUGS (1)
  1. TAMIFLU [Suspect]
     Active Substance: OSELTAMIVIR PHOSPHATE
     Indication: INFLUENZA
     Route: 048
     Dates: start: 20141224, end: 20141224

REACTIONS (6)
  - Crying [None]
  - Energy increased [None]
  - Hallucination [None]
  - Aggression [None]
  - Screaming [None]
  - Staring [None]

NARRATIVE: CASE EVENT DATE: 20141224
